FAERS Safety Report 8187362-7 (Version None)
Quarter: 2012Q1

REPORT INFORMATION
  Report Type: 
  Country: None (occurrence: None)
  Receive Date: 20120202
  Receipt Date: 20111212
  Transmission Date: 20120608
  Serious: Yes (Other)
  Sender: FDA-Public Use
  Company Number: US-GDP-11412605

PATIENT
  Sex: Female

DRUGS (1)
  1. METROGEL [Suspect]
     Indication: ROSACEA
     Dosage: (1 DF BID TOPICAL)
     Route: 061

REACTIONS (1)
  - BREAST CANCER FEMALE [None]
